APPROVED DRUG PRODUCT: CYTOVENE
Active Ingredient: GANCICLOVIR SODIUM
Strength: EQ 500MG BASE/VIAL **Federal Register determination that product was not discontinued or withdrawn for safety or effectiveness reasons**
Dosage Form/Route: INJECTABLE;INJECTION
Application: N019661 | Product #001
Applicant: CHEPLAPHARM ARZNEIMITTEL GMBH
Approved: Jun 23, 1989 | RLD: Yes | RS: No | Type: DISCN